FAERS Safety Report 4987801-6 (Version None)
Quarter: 2006Q2

REPORT INFORMATION
  Report Type: 
  Country: None (occurrence: None)
  Receive Date: 20060424
  Receipt Date: 20060410
  Transmission Date: 20061013
  Serious: Yes (Hospitalization)
  Sender: FDA-Public Use
  Company Number: FR200604001840

PATIENT
  Age: 60 Year
  Sex: Male

DRUGS (6)
  1. ALIMTA [Suspect]
     Indication: NON-SMALL CELL LUNG CANCER
     Dosage: 500 MG/M2, OTHER, INTRAVENOUS
     Route: 042
     Dates: start: 20060301
  2. CISPLATIN [Concomitant]
  3. FOLIC ACID [Concomitant]
  4. CYANOCOBALAMIN [Concomitant]
  5. CORTICOSTEROID NOS (CORTICOSTEROID NOS) [Concomitant]
  6. ENOXAPARIN SODIUM [Concomitant]

REACTIONS (2)
  - HAEMATOMA [None]
  - THROMBOCYTOPENIA [None]
